FAERS Safety Report 19154490 (Version 1)
Quarter: 2021Q2

REPORT INFORMATION
  Report Type: Spontaneous
  Country: ZA (occurrence: ZA)
  Receive Date: 20210419
  Receipt Date: 20210419
  Transmission Date: 20210717
  Serious: Yes (Other)
  Sender: FDA-Public Use
  Company Number: ZA-PFIZER INC-2021390871

PATIENT
  Sex: Male
  Weight: 71.8 kg

DRUGS (2)
  1. CHLOROQUINE. [Suspect]
     Active Substance: CHLOROQUINE
     Dosage: 200 MG, DAILY
     Dates: start: 201501, end: 202001
  2. METHOTREXATE. [Suspect]
     Active Substance: METHOTREXATE
     Dosage: 15 MG, WEEKLY
     Dates: start: 201801, end: 201803

REACTIONS (4)
  - Physical disability [Unknown]
  - Psoriasis [Unknown]
  - Disease progression [Unknown]
  - Arthritis [Unknown]
